FAERS Safety Report 14081865 (Version 3)
Quarter: 2020Q1

REPORT INFORMATION
  Report Type: Spontaneous
  Country: GB (occurrence: GB)
  Receive Date: 20171013
  Receipt Date: 20200316
  Transmission Date: 20200409
  Serious: Yes (Other)
  Sender: FDA-Public Use
  Company Number: GB-PFIZER INC-2017440289

PATIENT
  Age: 63 Year
  Sex: Female
  Weight: 70 kg

DRUGS (6)
  1. LEVOTHYROXINE. [Concomitant]
     Active Substance: LEVOTHYROXINE
     Dosage: 100 UG, 1X/DAY
     Dates: start: 20170605
  2. AMLODIPINE [Concomitant]
     Active Substance: AMLODIPINE BESYLATE
     Dosage: 5 MG, 1X/DAY
     Dates: start: 20170605
  3. DOXAZOSIN [Concomitant]
     Active Substance: DOXAZOSIN MESYLATE
     Dosage: 2 MG, 1X/DAY
     Dates: start: 20170605
  4. RAMIPRIL. [Concomitant]
     Active Substance: RAMIPRIL
     Dosage: 10 MG, 1X/DAY
     Dates: start: 20170605
  5. ATORVASTATIN [Suspect]
     Active Substance: ATORVASTATIN
     Dosage: 10 MG, UNK
  6. PREMARIN [Concomitant]
     Active Substance: ESTROGENS, CONJUGATED
     Dosage: 0.3 MG, TAKE DAILY ON 4 DAYS OF THE WEEK.
     Dates: start: 20170831

REACTIONS (2)
  - Arthralgia [Recovered/Resolved]
  - Pain in jaw [Recovered/Resolved]

NARRATIVE: CASE EVENT DATE: 20161215
